FAERS Safety Report 9198132 (Version 2)
Quarter: 2013Q2

REPORT INFORMATION
  Report Type: Spontaneous
  Country: BR (occurrence: BR)
  Receive Date: 20130329
  Receipt Date: 20130503
  Transmission Date: 20140414
  Serious: Yes (Other)
  Sender: FDA-Public Use
  Company Number: BR-ELI_LILLY_AND_COMPANY-BR201303006240

PATIENT
  Age: 30 Year
  Sex: Female
  Weight: 68 kg

DRUGS (2)
  1. CYMBALTA [Suspect]
     Indication: DEPRESSION
     Dosage: 30 MG, QD
     Route: 048
     Dates: start: 201212, end: 20130318
  2. BROMAZEPAM [Concomitant]
     Dosage: 3 MG, UNK
     Route: 065

REACTIONS (4)
  - Skin exfoliation [Recovered/Resolved]
  - Oral disorder [Recovered/Resolved]
  - Gingival inflammation [Recovered/Resolved]
  - Hypersensitivity [Recovered/Resolved]
